FAERS Safety Report 13480028 (Version 2)
Quarter: 2017Q2

REPORT INFORMATION
  Report Type: Report from Study
  Country: US (occurrence: US)
  Receive Date: 20170425
  Receipt Date: 20170426
  Transmission Date: 20170830
  Serious: Yes (Death)
  Sender: FDA-Public Use
  Company Number: US-SA-2017SA073468

PATIENT
  Age: 80 Year
  Sex: Female

DRUGS (1)
  1. MOZOBIL [Suspect]
     Active Substance: PLERIXAFOR
     Indication: GLIOBLASTOMA
     Route: 058
     Dates: start: 20161025

REACTIONS (3)
  - Disease progression [Fatal]
  - Respiratory failure [Fatal]
  - Product use in unapproved indication [Unknown]
